FAERS Safety Report 25970872 (Version 1)
Quarter: 2025Q4

REPORT INFORMATION
  Report Type: Spontaneous
  Country: EU (occurrence: EU)
  Receive Date: 20251028
  Receipt Date: 20251028
  Transmission Date: 20260118
  Serious: Yes (Hospitalization, Other)
  Sender: ELI LILLY AND COMPANY
  Company Number: EU-009507513-2334743

PATIENT
  Age: 65 Year
  Sex: Female

DRUGS (8)
  1. PEMETREXED [Suspect]
     Active Substance: PEMETREXED
     Indication: Lung adenocarcinoma
     Dosage: UNK, UNKNOWN
     Route: 065
     Dates: start: 20210831
  2. PEMETREXED [Suspect]
     Active Substance: PEMETREXED
     Indication: Non-small cell lung cancer metastatic
  3. PEMBROLIZUMAB [Suspect]
     Active Substance: PEMBROLIZUMAB
     Indication: Non-small cell lung cancer metastatic
     Dosage: UNK UNK, UNKNOWN
     Route: 065
     Dates: start: 20210831, end: 202211
  4. PEMBROLIZUMAB [Suspect]
     Active Substance: PEMBROLIZUMAB
     Indication: Lung adenocarcinoma
     Dosage: UNK UNK, UNKNOWN
     Route: 065
     Dates: start: 20230131
  5. CARBOPLATIN [Suspect]
     Active Substance: CARBOPLATIN
     Indication: Lung adenocarcinoma
     Dosage: UNK UNK, UNKNOWN
     Route: 065
     Dates: start: 20210831
  6. CARBOPLATIN [Suspect]
     Active Substance: CARBOPLATIN
     Indication: Non-small cell lung cancer metastatic
  7. LEVOTHYROXINE SODIUM [Concomitant]
     Active Substance: LEVOTHYROXINE SODIUM
     Indication: Product used for unknown indication
     Route: 065
  8. ATACAND [Concomitant]
     Active Substance: CANDESARTAN CILEXETIL
     Indication: Product used for unknown indication
     Route: 065

REACTIONS (7)
  - Hypothyroidism [Unknown]
  - Blood creatinine increased [Unknown]
  - Eyelid oedema [Unknown]
  - Decreased appetite [Unknown]
  - Therapy partial responder [Unknown]
  - Rash pruritic [Unknown]
  - Transaminases increased [Unknown]

NARRATIVE: CASE EVENT DATE: 20211201
